FAERS Safety Report 18875999 (Version 1)
Quarter: 2021Q1

REPORT INFORMATION
  Report Type: Spontaneous
  Country: GB (occurrence: GB)
  Receive Date: 20210211
  Receipt Date: 20210211
  Transmission Date: 20210420
  Serious: Yes (Other)
  Sender: FDA-Public Use
  Company Number: GB-TEVA-2021-GB-1879337

PATIENT
  Age: 28 Year
  Sex: Male

DRUGS (15)
  1. BLEOMYCIN [Suspect]
     Active Substance: BLEOMYCIN SULFATE
     Indication: TESTICULAR GERM CELL TUMOUR
  2. CARBOPLATIN. [Suspect]
     Active Substance: CARBOPLATIN
     Indication: TESTIS CANCER
  3. CARBOPLATIN. [Suspect]
     Active Substance: CARBOPLATIN
     Indication: TESTICULAR GERM CELL TUMOUR
  4. CISPLATIN. [Suspect]
     Active Substance: CISPLATIN
     Indication: TESTICULAR GERM CELL TUMOUR
  5. CISPLATIN. [Suspect]
     Active Substance: CISPLATIN
     Indication: TESTIS CANCER
  6. ETOPOSIDE. [Suspect]
     Active Substance: ETOPOSIDE
     Indication: METASTASES TO EYE
     Dosage: RECEIVED FOUR CYCLES OF BLEOMYCIN, ETOPOSIDE AND CISPLATIN (BEP) CHEMOTHERAPY
     Route: 065
  7. BLEOMYCIN [Suspect]
     Active Substance: BLEOMYCIN SULFATE
     Indication: METASTASES TO EYE
     Dosage: RECEIVED FOUR CYCLES OF BLEOMYCIN, ETOPOSIDE AND CISPLATIN (BEP) CHEMOTHERAPY
     Route: 065
  8. ETOPOSIDE. [Suspect]
     Active Substance: ETOPOSIDE
     Indication: TESTICULAR GERM CELL TUMOUR
  9. IFOSFAMIDE. [Suspect]
     Active Substance: IFOSFAMIDE
     Indication: METASTASES TO EYE
     Dosage: IFOSFAMIDE, CARBOPLATIN AND ETOPOSIDE (ICE) CHEMOTHERAPY
     Route: 065
  10. BLEOMYCIN [Suspect]
     Active Substance: BLEOMYCIN SULFATE
     Indication: TESTIS CANCER
  11. CARBOPLATIN. [Suspect]
     Active Substance: CARBOPLATIN
     Indication: METASTASES TO EYE
     Dosage: IFOSFAMIDE, CARBOPLATIN AND ETOPOSIDE (ICE) CHEMOTHERAPY
     Route: 065
  12. CISPLATIN. [Suspect]
     Active Substance: CISPLATIN
     Indication: METASTASES TO EYE
     Dosage: RECEIVED FOUR CYCLES OF BLEOMYCIN, ETOPOSIDE AND CISPLATIN (BEP) CHEMOTHERAPY
     Route: 065
  13. IFOSFAMIDE. [Suspect]
     Active Substance: IFOSFAMIDE
     Indication: TESTICULAR GERM CELL TUMOUR
  14. ETOPOSIDE. [Suspect]
     Active Substance: ETOPOSIDE
     Indication: TESTIS CANCER
     Dosage: IFOSFAMIDE, CARBOPLATIN AND ETOPOSIDE (ICE) CHEMOTHERAPY
     Route: 065
  15. IFOSFAMIDE. [Suspect]
     Active Substance: IFOSFAMIDE
     Indication: TESTIS CANCER

REACTIONS (2)
  - Retinal haemorrhage [Unknown]
  - Thrombocytopenia [Unknown]
